FAERS Safety Report 16773988 (Version 1)
Quarter: 2019Q3

REPORT INFORMATION
  Report Type: Report from Study
  Country: None (occurrence: US)
  Receive Date: 20190905
  Receipt Date: 20190905
  Transmission Date: 20191005
  Serious: Yes (Other)
  Sender: FDA-Public Use
  Company Number: US-ABBVIE-19K-163-2909840-00

PATIENT
  Age: 76 Year
  Sex: Male

DRUGS (1)
  1. CREON [Suspect]
     Active Substance: PANCRELIPASE AMYLASE\PANCRELIPASE LIPASE\PANCRELIPASE PROTEASE
     Indication: PRODUCT USED FOR UNKNOWN INDICATION
     Route: 048

REACTIONS (10)
  - Tonsillectomy [Unknown]
  - Femoral neck fracture [Unknown]
  - Spinal operation [Unknown]
  - Weight decreased [Unknown]
  - Pain [Unknown]
  - Hip fracture [Unknown]
  - Inguinal hernia [Unknown]
  - Middle insomnia [Unknown]
  - Pancreatic cyst [Unknown]
  - Joint surgery [Unknown]

NARRATIVE: CASE EVENT DATE: 201811
